FAERS Safety Report 8874048 (Version 1)
Quarter: 2012Q4

REPORT INFORMATION
  Report Type: 
  Country: US (occurrence: US)
  Receive Date: 20121031
  Receipt Date: 20121031
  Transmission Date: 20130627
  Serious: No
  Sender: FDA-Public Use
  Company Number: US-009507513-2012SP008734

PATIENT
  Age: 28 Year
  Sex: Female

DRUGS (1)
  1. SOLARCAINE COOL ALOE [Suspect]
     Indication: SUNBURN
     Dosage: UNK UNK, Unknown
     Route: 061
     Dates: start: 201201, end: 20120128

REACTIONS (3)
  - Hypersensitivity [Recovered/Resolved]
  - Rash pruritic [Recovered/Resolved]
  - Drug ineffective [Recovered/Resolved]
